FAERS Safety Report 21762483 (Version 1)
Quarter: 2022Q4

REPORT INFORMATION
  Report Type: Spontaneous
  Country: IT (occurrence: IT)
  Receive Date: 20221221
  Receipt Date: 20221221
  Transmission Date: 20230113
  Serious: Yes (Other)
  Sender: FDA-Public Use
  Company Number: IT-BAXTER-2022BAX030956

PATIENT

DRUGS (6)
  1. SODIUM CHLORIDE [Suspect]
     Active Substance: SODIUM CHLORIDE
     Indication: Medication dilution
     Dosage: THREE CYCLES AT AN UNSPECIFIED DOSE
     Route: 065
     Dates: start: 20210715, end: 20210924
  2. SODIUM CHLORIDE [Suspect]
     Active Substance: SODIUM CHLORIDE
     Dosage: TWO CYCLES AT AN UNSPECIFIED DOSE
     Route: 065
     Dates: start: 20220718, end: 20220808
  3. PEMETREXED [Suspect]
     Active Substance: PEMETREXED
     Dosage: THREE CYCLES AT AN UNSPECIFIED DOSE
     Route: 065
     Dates: start: 20210715, end: 20210924
  4. PEMETREXED [Suspect]
     Active Substance: PEMETREXED
     Dosage: TWO CYCLES AT AN UNSPECIFIED DOSE
     Route: 065
     Dates: start: 20220718, end: 20220808
  5. CISPLATIN [Suspect]
     Active Substance: CISPLATIN
     Dosage: THREE CYCLES AT AN UNSPECIFIED DOSE
     Route: 065
     Dates: start: 20210715, end: 20210924
  6. CARBOPLATIN [Suspect]
     Active Substance: CARBOPLATIN
     Dosage: TWO CYCLES AT AN UNSPECIFIED DOSE
     Route: 065
     Dates: start: 20220718, end: 20220808

REACTIONS (1)
  - Disease progression [Unknown]
